FAERS Safety Report 20204223 (Version 1)
Quarter: 2021Q4

REPORT INFORMATION
  Report Type: Spontaneous
  Country: DE (occurrence: DE)
  Receive Date: 20211220
  Receipt Date: 20211220
  Transmission Date: 20220303
  Serious: Yes (Hospitalization)
  Sender: FDA-Public Use
  Company Number: DE-ADRED-05939-01

PATIENT
  Age: 82 Year
  Sex: Female

DRUGS (8)
  1. AMLODIPINE [Suspect]
     Active Substance: AMLODIPINE BESYLATE
     Indication: Product used for unknown indication
     Dosage: 5 MILLIGRAM (1-0-1-0)
     Route: 065
  2. METAMIZOL [Concomitant]
     Active Substance: METAMIZOLE SODIUM
     Indication: Product used for unknown indication
     Dosage: UNK (30 GTT, 4X)
     Route: 065
  3. SPIRONOLACTONE [Concomitant]
     Active Substance: SPIRONOLACTONE
     Indication: Product used for unknown indication
     Dosage: 50 MILLIGRAM (0.5-0-0-0)
     Route: 065
  4. RAMIPRIL [Concomitant]
     Active Substance: RAMIPRIL
     Indication: Product used for unknown indication
     Dosage: 5 MILLIGRAM (1-0-1-0)
     Route: 065
  5. LEVOTHYROXINE SODIUM\POTASSIUM IODIDE [Concomitant]
     Active Substance: LEVOTHYROXINE SODIUM\POTASSIUM IODIDE
     Indication: Product used for unknown indication
     Dosage: 150/100 MICROGRAM PER MILLIGRAM ((1-0-0-0))
     Route: 065
  6. VALERIAN [Concomitant]
     Active Substance: VALERIAN
     Indication: Product used for unknown indication
     Dosage: UNK (0-0-1-0 )
     Route: 065
  7. CHLORTHALIDONE [Concomitant]
     Active Substance: CHLORTHALIDONE
     Indication: Product used for unknown indication
     Dosage: 50 MILLIGRAM (0.5-0-0-0 )
     Route: 065
  8. BISOPROLOL [Concomitant]
     Active Substance: BISOPROLOL
     Indication: Product used for unknown indication
     Dosage: 5 MILLIGRAM (1-0-0-0)
     Route: 065

REACTIONS (4)
  - Condition aggravated [Recovering/Resolving]
  - Chest pain [Recovering/Resolving]
  - General physical health deterioration [Recovering/Resolving]
  - Dyspnoea [Recovering/Resolving]
